FAERS Safety Report 8446992-5 (Version None)
Quarter: 2012Q2

REPORT INFORMATION
  Report Type: 
  Country: None (occurrence: None)
  Receive Date: 20120612
  Receipt Date: 20120531
  Transmission Date: 20120825
  Serious: Yes (Hospitalization)
  Sender: FDA-Public Use
  Company Number: 2012131260

PATIENT
  Age: 79 Year
  Sex: Female

DRUGS (2)
  1. CARBOPLATIN/ETOPOSIDE (CARBOPLATIN, ETOPOSIDE) [Concomitant]
  2. DALTEPARIN SODIUM [Suspect]
     Indication: LUNG NEOPLASM MALIGNANT
     Dates: start: 20101216

REACTIONS (6)
  - FAECALOMA [None]
  - DIARRHOEA [None]
  - VOMITING [None]
  - DECREASED APPETITE [None]
  - CONSTIPATION [None]
  - NAUSEA [None]
